FAERS Safety Report 19869187 (Version 1)
Quarter: 2021Q3

REPORT INFORMATION
  Report Type: Spontaneous
  Country: CA (occurrence: CA)
  Receive Date: 20210922
  Receipt Date: 20210922
  Transmission Date: 20211014
  Serious: Yes (Other)
  Sender: FDA-Public Use
  Company Number: CA-TERSERA THERAPEUTICS LLC-2021TRS004403

PATIENT

DRUGS (1)
  1. ZOLADEX [Suspect]
     Active Substance: GOSERELIN ACETATE
     Indication: PROSTATE CANCER
     Dosage: 10.8 MG, EVERY 3 MONTHS
     Route: 065
     Dates: end: 202008

REACTIONS (2)
  - Metastases to bone [Not Recovered/Not Resolved]
  - Azoospermia [Not Recovered/Not Resolved]

NARRATIVE: CASE EVENT DATE: 202108
